FAERS Safety Report 9003811 (Version 1)
Quarter: 2013Q1

REPORT INFORMATION
  Report Type: Spontaneous
  Country: US (occurrence: US)
  Receive Date: 20130108
  Receipt Date: 20130108
  Transmission Date: 20140127
  Serious: No
  Sender: FDA-Public Use
  Company Number: US-GLAXOSMITHKLINE-A0984447A

PATIENT
  Age: 67 Year
  Sex: Female

DRUGS (3)
  1. LOVAZA [Suspect]
     Indication: BLOOD TRIGLYCERIDES INCREASED
     Dosage: 2CAP TWICE PER DAY
     Route: 048
     Dates: start: 201201
  2. WELCHOL [Suspect]
     Dates: start: 201201, end: 201204
  3. SIMVASTATIN [Suspect]
     Dates: start: 201007, end: 201201

REACTIONS (1)
  - Alopecia [Not Recovered/Not Resolved]
